FAERS Safety Report 24084494 (Version 2)
Quarter: 2024Q3

REPORT INFORMATION
  Report Type: Spontaneous
  Country: AU (occurrence: AU)
  Receive Date: 20240712
  Receipt Date: 20240718
  Transmission Date: 20241016
  Serious: Yes (Hospitalization)
  Sender: MYLAN
  Company Number: AU-MYLANLABS-2024M1064903

PATIENT
  Sex: Male

DRUGS (1)
  1. CLOZARIL [Suspect]
     Active Substance: CLOZAPINE
     Indication: Schizophrenia
     Dosage: UNK
     Route: 048
     Dates: start: 20160705, end: 20240708

REACTIONS (7)
  - Rhabdomyolysis [Unknown]
  - Product dose omission issue [Unknown]
  - Malaise [Unknown]
  - COVID-19 [Unknown]
  - Blood creatine phosphokinase increased [Unknown]
  - Liver function test abnormal [Unknown]
  - Psychotic disorder [Unknown]
